FAERS Safety Report 7644361 (Version 4)
Quarter: 2012Q4

REPORT INFORMATION
  Report Type: Report from Study
  Country: US (occurrence: US)
  Receive Date: 20101028
  Receipt Date: 20121002
  Transmission Date: 20130627
  Serious: Yes (Hospitalization, Other)
  Sender: FDA-Public Use
  Company Number: US-RB-013281-10

PATIENT
  Age: 36 None
  Sex: Female

DRUGS (8)
  1. SUBOXONE TABLET [Suspect]
     Indication: DRUG DEPENDENCE
     Route: 060
     Dates: start: 200703, end: 201007
  2. SUBUTEX [Suspect]
     Indication: DRUG DEPENDENCE
     Route: 060
     Dates: start: 201007
  3. SUBUTEX [Suspect]
     Indication: DRUG DEPENDENCE
     Dosage: Half/day
     Route: 065
  4. KLONOPIN [Concomitant]
     Indication: ANXIETY
     Route: 065
  5. ALBUTEROL INHALER [Concomitant]
     Indication: CHRONIC OBSTRUCTIVE PULMONARY DISEASE
     Dosage: Dosing details unknown
     Route: 055
  6. PEPCID [Concomitant]
     Indication: GASTROOESOPHAGEAL REFLUX DISEASE
     Dosage: Dosing details unknown
     Route: 065
  7. ATROVENT [Concomitant]
     Indication: CHRONIC OBSTRUCTIVE PULMONARY DISEASE
     Dosage: Dosing details unknown
     Route: 065
  8. MINERALS\VITAMINS [Concomitant]
     Indication: PRODUCT USED FOR UNKNOWN INDICATION
     Dosage: Dosing details unknown
     Route: 065
     Dates: start: 2010

REACTIONS (11)
  - Exposure during pregnancy [Recovered/Resolved]
  - Blood count abnormal [Recovered/Resolved]
  - Asthenia [Not Recovered/Not Resolved]
  - Fatigue [Not Recovered/Not Resolved]
  - Malaise [Not Recovered/Not Resolved]
  - Back pain [Not Recovered/Not Resolved]
  - Influenza [Not Recovered/Not Resolved]
  - Pneumonia [Not Recovered/Not Resolved]
  - Premature rupture of membranes [Recovered/Resolved]
  - Stillbirth [Recovered/Resolved]
  - Pregnancy [None]
